FAERS Safety Report 8143978-5 (Version None)
Quarter: 2012Q1

REPORT INFORMATION
  Report Type: 
  Country: None (occurrence: None)
  Receive Date: 20120217
  Receipt Date: 20120217
  Transmission Date: 20120608
  Serious: No
  Sender: FDA-Public Use
  Company Number: None

PATIENT
  Age: 29 Year
  Sex: Male
  Weight: 88.45 kg

DRUGS (1)
  1. MEFLOQUINE HYDROCHLORIDE [Suspect]
     Indication: MALARIA PROPHYLAXIS
     Dosage: 1 PILL

REACTIONS (8)
  - NIGHTMARE [None]
  - ABNORMAL DREAMS [None]
  - PANIC ATTACK [None]
  - MEMORY IMPAIRMENT [None]
  - CONFUSIONAL STATE [None]
  - PALPITATIONS [None]
  - INSOMNIA [None]
  - PAIN [None]
